FAERS Safety Report 10080413 (Version 1)
Quarter: 2014Q2

REPORT INFORMATION
  Report Type: Spontaneous
  Country: US (occurrence: US)
  Receive Date: 20140416
  Receipt Date: 20140416
  Transmission Date: 20141212
  Serious: Yes (Death)
  Sender: FDA-Public Use
  Company Number: US-AMGEN-USASP2014026602

PATIENT
  Age: 48 Year
  Sex: Male

DRUGS (5)
  1. NEULASTA [Suspect]
     Indication: PRODUCT USED FOR UNKNOWN INDICATION
     Dosage: UNK
     Route: 065
  2. FLUOROURACIL [Concomitant]
     Indication: COLON CANCER
     Dosage: UNK
  3. FOLINIC ACID [Concomitant]
     Indication: COLON CANCER
     Dosage: UNK
  4. IRINOTECAN [Concomitant]
     Indication: COLON CANCER
     Dosage: UNK
  5. OXALIPLATIN [Concomitant]
     Indication: COLON CANCER
     Dosage: UNK

REACTIONS (1)
  - Death [Fatal]
